FAERS Safety Report 9419801 (Version 1)
Quarter: 2013Q3

REPORT INFORMATION
  Report Type: Spontaneous
  Country: IT (occurrence: IT)
  Receive Date: 20130725
  Receipt Date: 20130725
  Transmission Date: 20140515
  Serious: Yes (Life-Threatening, Hospitalization, Other)
  Sender: FDA-Public Use
  Company Number: IT-B.I. PHARMACEUTICALS,INC./RIDGEFIELD-2013-BI-21584GD

PATIENT
  Age: 69 Day
  Sex: Male
  Weight: 7.2 kg

DRUGS (5)
  1. IPRATROPIUMBROMID [Suspect]
     Indication: RESPIRATORY SYNCYTIAL VIRUS BRONCHIOLITIS
     Dosage: 125 MCG
     Route: 055
  2. SALBUTAMOL [Suspect]
     Indication: RESPIRATORY SYNCYTIAL VIRUS BRONCHIOLITIS
     Dosage: 100 MCG/KG
     Route: 055
  3. EPINEPHRINE [Suspect]
     Indication: RESPIRATORY SYNCYTIAL VIRUS BRONCHIOLITIS
     Dosage: 0.25 MG/KG
     Route: 055
  4. METHYLPREDNISOLONE [Suspect]
     Indication: RESPIRATORY SYNCYTIAL VIRUS BRONCHIOLITIS
     Dosage: 1 MG/KG
     Route: 042
  5. OXYGEN [Concomitant]
     Indication: RESPIRATORY SYNCYTIAL VIRUS BRONCHIOLITIS

REACTIONS (8)
  - Drug ineffective [Unknown]
  - Respiratory distress [Unknown]
  - Apnoea [Unknown]
  - Cyanosis [Unknown]
  - Bronchial obstruction [Unknown]
  - Agitation [Recovered/Resolved]
  - Tachycardia [Recovered/Resolved]
  - Respiratory acidosis [Unknown]
